FAERS Safety Report 6147427-8 (Version None)
Quarter: 2009Q2

REPORT INFORMATION
  Report Type: 
  Country: None (occurrence: None)
  Receive Date: 20090402
  Receipt Date: 20090318
  Transmission Date: 20091009
  Serious: Yes (Other)
  Sender: FDA-Public Use
  Company Number: 2009S1005165

PATIENT
  Sex: Female

DRUGS (1)
  1. METFORMIN (METFORMIN) (850 MG) [Suspect]
     Indication: DRUG USE FOR UNKNOWN INDICATION
     Dosage: ORAL
     Route: 048
     Dates: start: 20090201

REACTIONS (2)
  - FATIGUE [None]
  - HANGOVER [None]
